FAERS Safety Report 10143482 (Version 2)
Quarter: 2014Q2

REPORT INFORMATION
  Report Type: Spontaneous
  Country: US (occurrence: US)
  Receive Date: 20140430
  Receipt Date: 20140502
  Transmission Date: 20141212
  Serious: No
  Sender: FDA-Public Use
  Company Number: US-PFIZER INC-2014114415

PATIENT
  Age: 62 Year
  Sex: Male
  Weight: 86.62 kg

DRUGS (4)
  1. SUTENT [Suspect]
     Dosage: 50 MG, DAILY
  2. CRESTOR [Concomitant]
     Dosage: UNK
  3. SYNTHROID [Concomitant]
     Dosage: UNK
  4. VICODIN [Concomitant]
     Dosage: UNK

REACTIONS (7)
  - Muscle strain [Not Recovered/Not Resolved]
  - Pain [Unknown]
  - Oral mucosal blistering [Unknown]
  - Fatigue [Unknown]
  - Stomatitis [Recovering/Resolving]
  - Dyspepsia [Unknown]
  - Ageusia [Unknown]
